FAERS Safety Report 16283588 (Version 1)
Quarter: 2019Q2

REPORT INFORMATION
  Report Type: Report from Study
  Country: US (occurrence: TW)
  Receive Date: 20190507
  Receipt Date: 20190507
  Transmission Date: 20190711
  Serious: Yes (Other)
  Sender: FDA-Public Use
  Company Number: TW-BRECKENRIDGE PHARMACEUTICAL, INC.-2066761

PATIENT
  Age: 63 Year
  Sex: Male

DRUGS (1)
  1. IMATINIB. [Suspect]
     Active Substance: IMATINIB MESYLATE

REACTIONS (1)
  - Compartment syndrome [None]
